FAERS Safety Report 15291287 (Version 1)
Quarter: 2018Q3

REPORT INFORMATION
  Report Type: Spontaneous
  Country: GB (occurrence: GB)
  Receive Date: 20180817
  Receipt Date: 20180817
  Transmission Date: 20181010
  Serious: Yes (Life-Threatening, Hospitalization)
  Sender: FDA-Public Use
  Company Number: GB-TEVA-2018-GB-942872

PATIENT
  Age: 81 Year
  Sex: Female
  Weight: 115 kg

DRUGS (9)
  1. PREDNISOLONE. [Interacting]
     Active Substance: PREDNISOLONE
     Route: 065
  2. SIMVASTATIN. [Interacting]
     Active Substance: SIMVASTATIN
     Route: 065
  3. MICONAZOLE. [Interacting]
     Active Substance: MICONAZOLE
     Indication: ORAL CANDIDIASIS
     Dosage: 4 DOSAGE FORMS DAILY;
     Route: 048
     Dates: start: 20180522, end: 20180610
  4. FLUOXETINE [Interacting]
     Active Substance: FLUOXETINE HYDROCHLORIDE
     Route: 065
  5. AMITRIPTYLINE [Concomitant]
     Active Substance: AMITRIPTYLINE
     Route: 065
  6. LEVOTHYROXINE SODIUM. [Interacting]
     Active Substance: LEVOTHYROXINE SODIUM
     Route: 065
  7. ADIZEM [Interacting]
     Active Substance: DILTIAZEM HYDROCHLORIDE
     Route: 065
  8. WARFARIN [Suspect]
     Active Substance: WARFARIN
     Route: 065
  9. BETMIGA [Concomitant]
     Active Substance: MIRABEGRON
     Route: 065

REACTIONS (2)
  - Gastrointestinal haemorrhage [Recovered/Resolved]
  - Labelled drug-drug interaction medication error [Unknown]

NARRATIVE: CASE EVENT DATE: 20180610
